FAERS Safety Report 4359298-0 (Version None)
Quarter: 2004Q2

REPORT INFORMATION
  Report Type: 
  Country: None (occurrence: None)
  Receive Date: 20040512
  Receipt Date: 20040429
  Transmission Date: 20050107
  Serious: Yes (Hospitalization)
  Sender: FDA-Public Use
  Company Number: DPC-2004-00042

PATIENT
  Age: 59 Year
  Sex: Female

DRUGS (9)
  1. EVOXAC [Suspect]
     Indication: DRY MOUTH
     Dosage: 30 MG (INTERMITTENTLY), ORAL
     Route: 048
  2. SOTALOL (SOTALOL) (UNKNOWN) (SOTALOL) [Concomitant]
  3. COUMADIN (WARFARIN SODIUM) (UNKNOWN) (WARFARIN SODIUM) [Concomitant]
  4. IMDUR (ISOSORBIDE MONONITRATE) (UNKNOWN) (ISOSORBIDE MONONITRATE) [Concomitant]
  5. BUMEX (BUMETANIDE) (UNKNOWN) (BUMETANIDE) [Concomitant]
  6. ACCUPRIL (QUINAPRIL HYDROCHLORIDE) (UNKNOWN) (QUINAPRIL HYDROCHLORIDE) [Concomitant]
  7. NEXIUM (ESOMEPRAZOLE MAGNESIUM) (UNKNOWN) (ESOMEPRAZOLE MAGNESIUM) [Concomitant]
  8. WELLBUTRIN (BUPROPION HYDROCHLORIDE) (UNKNOWN) (BUPROPION HYDROCHLORID [Concomitant]
  9. DURAGESIC PATCH (FENTANYL) (POULTICE OR PATCH) (FENTANYL ) [Concomitant]

REACTIONS (4)
  - DYSPNOEA [None]
  - ELECTROCARDIOGRAM QT PROLONGED [None]
  - TORSADE DE POINTES [None]
  - TREATMENT NONCOMPLIANCE [None]
